FAERS Safety Report 23808322 (Version 1)
Quarter: 2024Q2

REPORT INFORMATION
  Report Type: Spontaneous
  Country: US (occurrence: US)
  Receive Date: 20240502
  Receipt Date: 20240502
  Transmission Date: 20240716
  Serious: Yes (Other)
  Sender: FDA-Public Use
  Company Number: US-JNJFOC-20240474933

PATIENT

DRUGS (29)
  1. REMICADE [Suspect]
     Active Substance: INFLIXIMAB
     Indication: Rheumatoid arthritis
     Route: 065
  2. RAYALDEE [Concomitant]
     Active Substance: CALCIFEDIOL
  3. LINZESS [Concomitant]
     Active Substance: LINACLOTIDE
  4. DOXYCYCLINE HYCLATE [Concomitant]
     Active Substance: DOXYCYCLINE HYCLATE
  5. BUMETANIDE [Concomitant]
     Active Substance: BUMETANIDE
  6. FINASTERIDE [Concomitant]
     Active Substance: FINASTERIDE
  7. MONTELUKAST SODIUM [Concomitant]
     Active Substance: MONTELUKAST SODIUM
  8. TAMSULOSIN HYDROCHLORIDE [Concomitant]
     Active Substance: TAMSULOSIN HYDROCHLORIDE
  9. ATORVASTATIN CALCIUM [Concomitant]
     Active Substance: ATORVASTATIN CALCIUM
  10. FLUTICASONE PROPIONATE [Concomitant]
     Active Substance: FLUTICASONE PROPIONATE
  11. PEG-3350 AND ELECTROLYTES [Concomitant]
     Active Substance: POLYETHYLENE GLYCOL 3350\POTASSIUM CHLORIDE\SODIUM BICARBONATE\SODIUM CHLORIDE\SODIUM SULFATE
  12. CILOSTAZOL [Concomitant]
     Active Substance: CILOSTAZOL
  13. FUROSEMIDE [Concomitant]
     Active Substance: FUROSEMIDE
  14. TRELEGY ELLIPTA [Concomitant]
     Active Substance: FLUTICASONE FUROATE\UMECLIDINIUM BROMIDE\VILANTEROL TRIFENATATE
  15. ALBUTEROL SULFATE [Concomitant]
     Active Substance: ALBUTEROL SULFATE
  16. DOXYCYCLINE HYCLATE [Concomitant]
     Active Substance: DOXYCYCLINE HYCLATE
  17. BENICAR HCT [Concomitant]
     Active Substance: HYDROCHLOROTHIAZIDE\OLMESARTAN MEDOXOMIL
  18. BENZONATATE [Concomitant]
     Active Substance: BENZONATATE
  19. FOLIC ACID [Concomitant]
     Active Substance: FOLIC ACID
  20. LACTULOSE [Concomitant]
     Active Substance: LACTULOSE
  21. METOPROLOL SUCCINATE [Concomitant]
     Active Substance: METOPROLOL SUCCINATE
  22. MUPIROCIN [Concomitant]
     Active Substance: MUPIROCIN
  23. NITROGLYCERIN [Concomitant]
     Active Substance: NITROGLYCERIN
  24. PREDNISONE [Concomitant]
     Active Substance: PREDNISONE
  25. SPIRIVA RESPIMAT [Concomitant]
     Active Substance: TIOTROPIUM BROMIDE
  26. SPIRONOLACTONE [Concomitant]
     Active Substance: SPIRONOLACTONE
  27. VITAMIN B12 [Concomitant]
     Active Substance: CYANOCOBALAMIN
  28. OMEPRAZOLE [Concomitant]
     Active Substance: OMEPRAZOLE
  29. CLOPIDOGREL [Concomitant]
     Active Substance: CLOPIDOGREL BISULFATE

REACTIONS (2)
  - Ophthalmic herpes zoster [Unknown]
  - Drug ineffective [Unknown]
